FAERS Safety Report 14693457 (Version 1)
Quarter: 2018Q1

REPORT INFORMATION
  Report Type: Report from Study
  Country: US (occurrence: US)
  Receive Date: 20180329
  Receipt Date: 20180329
  Transmission Date: 20180509
  Serious: Yes (Hospitalization)
  Sender: FDA-Public Use
  Company Number: US-EISAI MEDICAL RESEARCH-EC-2017-034622

PATIENT
  Age: 68 Year
  Sex: Female
  Weight: 64.4 kg

DRUGS (14)
  1. LIPITOR [Concomitant]
     Active Substance: ATORVASTATIN CALCIUM
  2. TRAMADOL HCL-ACETAMINOPHEN [Concomitant]
  3. LEVOTHYROXINE SODIUM. [Concomitant]
     Active Substance: LEVOTHYROXINE SODIUM
  4. MAGNESIUM OXIDE. [Concomitant]
     Active Substance: MAGNESIUM OXIDE
  5. MULTIVITAMIN 50 PLUS [Concomitant]
  6. LOMOTIL [Concomitant]
     Active Substance: ATROPINE SULFATE\DIPHENOXYLATE HYDROCHLORIDE
  7. AFINITOR [Concomitant]
     Active Substance: EVEROLIMUS
     Dates: start: 2017, end: 20180314
  8. CALCIUM [Concomitant]
     Active Substance: CALCIUM
  9. TRAMADOL. [Concomitant]
     Active Substance: TRAMADOL
  10. LENVIMA [Suspect]
     Active Substance: LENVATINIB
     Indication: RENAL CANCER
     Route: 048
     Dates: start: 20171216, end: 201801
  11. LENVIMA [Suspect]
     Active Substance: LENVATINIB
     Route: 048
     Dates: start: 201801, end: 201803
  12. LENVIMA [Suspect]
     Active Substance: LENVATINIB
     Route: 048
     Dates: start: 20180323
  13. CRANBERRY. [Concomitant]
     Active Substance: CRANBERRY
  14. NORCO [Concomitant]
     Active Substance: ACETAMINOPHEN\HYDROCODONE BITARTRATE

REACTIONS (13)
  - Gastritis [Unknown]
  - Malaise [Unknown]
  - Loss of consciousness [Unknown]
  - Headache [Not Recovered/Not Resolved]
  - Blood pressure increased [Unknown]
  - Decreased appetite [Unknown]
  - Dehydration [Unknown]
  - Constipation [Unknown]
  - Diarrhoea [Unknown]
  - Fatigue [Unknown]
  - Vomiting [Unknown]
  - Pleural effusion [Unknown]
  - Pain [Unknown]

NARRATIVE: CASE EVENT DATE: 201712
